FAERS Safety Report 4933007-6 (Version None)
Quarter: 2006Q1

REPORT INFORMATION
  Report Type: 
  Country: None (occurrence: None)
  Receive Date: 20060306
  Receipt Date: 20060202
  Transmission Date: 20060701
  Serious: Yes (Death)
  Sender: FDA-Public Use
  Company Number: PHHO2006JP01983

PATIENT
  Age: 82 Year
  Sex: Female

DRUGS (8)
  1. DIOVAN [Suspect]
     Indication: HYPERTENSION
     Dosage: 80 MG, QD
     Route: 048
     Dates: start: 20040205
  2. ASPIRIN [Suspect]
     Indication: THROMBOSIS
     Dosage: 100 MG, UNK
     Route: 048
     Dates: start: 20040205
  3. MUCOSTA [Concomitant]
     Indication: GASTRIC ULCER
     Dosage: 100 MG, UNK
     Route: 048
     Dates: start: 20040205
  4. MEVALOTIN [Suspect]
     Indication: HYPERCHOLESTEROLAEMIA
     Dosage: 10 MG, UNK
     Route: 048
     Dates: start: 20040205
  5. VERAPAMIL [Concomitant]
     Indication: HYPERTENSION
     Dosage: 120 MG, UNK
     Route: 048
     Dates: start: 20040205, end: 20040219
  6. FRANDOL [Concomitant]
     Indication: ANGINA PECTORIS
     Dosage: 40 MG, UNK
     Route: 048
     Dates: start: 20040205
  7. ADALAT [Suspect]
     Indication: HYPERTENSION
     Dosage: 20 MG, UNK
     Route: 048
     Dates: start: 20040219
  8. NATRIX [Concomitant]
     Indication: HYPERTENSION
     Dosage: 0.25 MG, UNK
     Route: 048
     Dates: start: 20040219

REACTIONS (1)
  - SUBARACHNOID HAEMORRHAGE [None]
